FAERS Safety Report 17816806 (Version 1)
Quarter: 2020Q2

REPORT INFORMATION
  Report Type: Report from Study
  Country: CA (occurrence: CA)
  Receive Date: 20200522
  Receipt Date: 20200522
  Transmission Date: 20200714
  Serious: Yes (Hospitalization, Other)
  Sender: FDA-Public Use
  Company Number: CA-PFIZER INC-2020201524

PATIENT
  Age: 71 Year
  Sex: Male

DRUGS (11)
  1. ATORVASTATIN CALCIUM. [Suspect]
     Active Substance: ATORVASTATIN CALCIUM
     Route: 065
  2. ASPIRINE [Suspect]
     Active Substance: ASPIRIN
     Route: 065
  3. PREDNISONE. [Suspect]
     Active Substance: PREDNISONE
     Route: 065
  4. AMLODIPINE BESILATE [Suspect]
     Active Substance: AMLODIPINE BESYLATE
     Route: 065
  5. SALBUTAMOL [Suspect]
     Active Substance: ALBUTEROL
     Route: 065
  6. ZENHALE [Suspect]
     Active Substance: FORMOTEROL FUMARATE\MOMETASONE FUROATE
     Route: 065
  7. GLICLAZIDE [Suspect]
     Active Substance: GLICLAZIDE
     Route: 065
  8. SALBUTAMOL SULFATE [Suspect]
     Active Substance: ALBUTEROL SULFATE
     Route: 065
  9. FORMOTEROL [Suspect]
     Active Substance: FORMOTEROL
     Route: 065
  10. JANUMET [Suspect]
     Active Substance: METFORMIN HYDROCHLORIDE\SITAGLIPTIN PHOSPHATE
     Route: 065
  11. MOMETASONE [Suspect]
     Active Substance: MOMETASONE
     Route: 065

REACTIONS (9)
  - Cough [Unknown]
  - Hypersensitivity [Unknown]
  - Cockroach allergy [Unknown]
  - Asthma [Unknown]
  - Dust allergy [Unknown]
  - Wheezing [Unknown]
  - Blood count abnormal [Unknown]
  - Gout [Unknown]
  - Dyspnoea [Unknown]
